FAERS Safety Report 18636215 (Version 1)
Quarter: 2020Q4

REPORT INFORMATION
  Report Type: Spontaneous
  Country: FR (occurrence: FR)
  Receive Date: 20201218
  Receipt Date: 20201218
  Transmission Date: 20210114
  Serious: Yes (Other)
  Sender: FDA-Public Use
  Company Number: FR-PFIZER INC-2020496128

PATIENT
  Age: 84 Year
  Sex: Female

DRUGS (5)
  1. VYNDAQEL [Suspect]
     Active Substance: TAFAMIDIS MEGLUMINE
     Dosage: 20 MG, DAILY
     Dates: end: 20201209
  2. LASILIX [FUROSEMIDE] [Concomitant]
     Active Substance: FUROSEMIDE
     Dosage: 0.25 DF, 2X/DAY
  3. SINTROM [Concomitant]
     Active Substance: ACENOCOUMAROL
  4. DIFFU K [Concomitant]
     Active Substance: POTASSIUM CHLORIDE
  5. CORDARONE [Concomitant]
     Active Substance: AMIODARONE HYDROCHLORIDE

REACTIONS (1)
  - Cardiac failure chronic [Unknown]
